FAERS Safety Report 6395054-X (Version None)
Quarter: 2009Q4

REPORT INFORMATION
  Report Type: 
  Country: None (occurrence: None)
  Receive Date: 20091009
  Receipt Date: 20090930
  Transmission Date: 20100525
  Serious: Yes (Other)
  Sender: FDA-Public Use
  Company Number: JP-JNJFOC-20091002494

PATIENT
  Sex: Male

DRUGS (3)
  1. REMICADE [Suspect]
     Indication: BEHCET'S SYNDROME
     Route: 042
  2. PREDNISOLONE [Concomitant]
     Indication: BEHCET'S SYNDROME
  3. CYCLOSPORINE [Concomitant]
     Indication: BEHCET'S SYNDROME

REACTIONS (2)
  - CYTOMEGALOVIRUS ENTEROCOLITIS [None]
  - PNEUMONIA [None]
